FAERS Safety Report 6990694-9 (Version None)
Quarter: 2010Q3

REPORT INFORMATION
  Report Type: 
  Country: None (occurrence: None)
  Receive Date: 20100916
  Receipt Date: 20100718
  Transmission Date: 20110219
  Serious: Yes (Other)
  Sender: FDA-Public Use
  Company Number: US-PFIZER INC-2010089453

PATIENT
  Sex: Female

DRUGS (2)
  1. LYRICA [Suspect]
     Indication: NERVE INJURY
     Dosage: 25 MG, DAILY
     Route: 048
     Dates: start: 20100101, end: 20100101
  2. LYRICA [Suspect]
     Dosage: 225 MG, DAILY
     Route: 048
     Dates: start: 20100101

REACTIONS (3)
  - HYPOKINESIA [None]
  - INTRAOCULAR PRESSURE INCREASED [None]
  - WEIGHT INCREASED [None]
